FAERS Safety Report 15369127 (Version 5)
Quarter: 2019Q1

REPORT INFORMATION
  Report Type: Report from Study
  Country: US (occurrence: US)
  Receive Date: 20180911
  Receipt Date: 20190306
  Transmission Date: 20190417
  Serious: Yes (Other)
  Sender: FDA-Public Use
  Company Number: PHHY2018US095154

PATIENT
  Age: 60 Year
  Sex: Female
  Weight: 61.22 kg

DRUGS (1)
  1. COSENTYX [Suspect]
     Active Substance: SECUKINUMAB
     Indication: PSORIATIC ARTHROPATHY
     Dosage: 300 MG, QMO
     Route: 058
     Dates: start: 201711

REACTIONS (8)
  - Psoriatic arthropathy [Unknown]
  - Stress [Unknown]
  - Laryngitis [Recovering/Resolving]
  - Cough [Unknown]
  - Rhinorrhoea [Unknown]
  - Bronchitis [Unknown]
  - Upper respiratory tract congestion [Unknown]
  - Ulcer [Unknown]

NARRATIVE: CASE EVENT DATE: 20180618
